FAERS Safety Report 6850862-3 (Version None)
Quarter: 2010Q3

REPORT INFORMATION
  Report Type: 
  Country: None (occurrence: None)
  Receive Date: 20100716
  Receipt Date: 20091125
  Transmission Date: 20110219
  Serious: No
  Sender: FDA-Public Use
  Company Number: US-PFIZER INC-2007090159

PATIENT
  Sex: Female
  Weight: 86.2 kg

DRUGS (6)
  1. CHANTIX [Suspect]
     Indication: SMOKING CESSATION THERAPY
     Dosage: 0.5 MG, 2X/DAY
     Route: 048
     Dates: start: 20080306
  2. DEPAKOTE [Concomitant]
     Indication: BIPOLAR DISORDER
  3. RISPERDAL [Concomitant]
     Indication: BIPOLAR DISORDER
  4. LEXAPRO [Concomitant]
     Indication: BIPOLAR DISORDER
  5. SEROQUEL [Concomitant]
     Indication: BIPOLAR DISORDER
  6. LIPITOR [Concomitant]

REACTIONS (12)
  - ABNORMAL DREAMS [None]
  - ANXIETY [None]
  - COUGH [None]
  - DEPRESSION [None]
  - DROOLING [None]
  - HEADACHE [None]
  - INAPPROPRIATE SCHEDULE OF DRUG ADMINISTRATION [None]
  - NAUSEA [None]
  - NIGHTMARE [None]
  - RESTLESSNESS [None]
  - TOBACCO USER [None]
  - VOMITING [None]
